FAERS Safety Report 11297160 (Version 1)
Quarter: 2015Q3

REPORT INFORMATION
  Report Type: Spontaneous
  Country: US (occurrence: US)
  Receive Date: 20150722
  Receipt Date: 20150722
  Transmission Date: 20151125
  Serious: No
  Sender: FDA-Public Use
  Company Number: US-ELI_LILLY_AND_COMPANY-US201011006113

PATIENT
  Age: 61 Year
  Sex: Female

DRUGS (1)
  1. EVISTA [Suspect]
     Active Substance: RALOXIFENE HYDROCHLORIDE
     Indication: PROPHYLAXIS
     Dosage: 60 MG, DAILY (1/D)

REACTIONS (4)
  - Blood urea nitrogen/creatinine ratio increased [Not Recovered/Not Resolved]
  - Thirst [Not Recovered/Not Resolved]
  - Off label use [Not Recovered/Not Resolved]
  - Specific gravity urine abnormal [Not Recovered/Not Resolved]
